FAERS Safety Report 4853289-9 (Version None)
Quarter: 2005Q4

REPORT INFORMATION
  Report Type: 
  Country: None (occurrence: None)
  Receive Date: 20051214
  Receipt Date: 20051209
  Transmission Date: 20060501
  Serious: Yes (Other)
  Sender: FDA-Public Use
  Company Number: US-GLAXOSMITHKLINE-A0585231A

PATIENT
  Age: 6 Week
  Sex: Female

DRUGS (1)
  1. PAXIL [Suspect]
     Indication: PANIC DISORDER
     Dosage: 10MG PER DAY
     Route: 048
     Dates: start: 20010701

REACTIONS (2)
  - DRUG EXPOSURE DURING PREGNANCY [None]
  - PULMONARY OEDEMA [None]
